FAERS Safety Report 8632258 (Version 2)
Quarter: 2012Q4

REPORT INFORMATION
  Report Type: 
  Country: US (occurrence: US)
  Receive Date: 20120625
  Receipt Date: 20120913
  Transmission Date: 20130627
  Serious: Yes (Hospitalization, Other)
  Sender: FDA-Public Use
  Company Number: US-BAYER-2012-059848

PATIENT
  Age: 29 Year
  Sex: Female
  Weight: 77.1 kg

DRUGS (17)
  1. GIANVI [Suspect]
     Indication: CONTRACEPTION
     Dosage: UNK
     Dates: start: 201006, end: 20110708
  2. YAZ [Suspect]
  3. ADDERALL XR [Concomitant]
     Indication: ATTENTION DEFICIT/HYPERACTIVITY DISORDER
     Dosage: 30 mg, daily
     Route: 048
     Dates: start: 20080609
  4. ADDERALL XR [Concomitant]
     Indication: ATTENTION DEFICIT/HYPERACTIVITY DISORDER
     Dosage: UNK
     Dates: start: 20110920, end: 20120228
  5. ZOLOFT [Concomitant]
     Indication: DEPRESSION
     Dosage: 50 mg, HS
     Route: 048
     Dates: start: 20100612, end: 20120427
  6. PRILOSEC [Concomitant]
     Indication: GASTROOESOPHAGEAL REFLUX DISEASE
     Dosage: 40 mg, BID
     Route: 048
     Dates: start: 20110414
  7. XANAX [Concomitant]
     Indication: ANXIETY
     Dosage: 0.5 mg, daily
     Route: 048
     Dates: start: 20101104, end: 20120514
  8. CYCLOBENZAPRINE [Concomitant]
     Indication: MUSCLE SPASMS
     Dosage: 10 mg ? at 7 am then ? at 2pm then one tablet at midnight
     Route: 048
     Dates: start: 20110428
  9. METAXALONE [Concomitant]
     Indication: MUSCLE SPASMS
     Dosage: 800 mg, TID
     Dates: start: 20110507, end: 20110607
  10. D-AMPHETAMINE SALT COM XR CAPS [Concomitant]
     Indication: ATTENTION DEFICIT/HYPERACTIVITY DISORDER
     Dosage: 20 mg, QD
     Route: 048
     Dates: start: 20101104, end: 20101209
  11. D-AMPHETAMINE SALT COM XR CAPS [Concomitant]
     Indication: ATTENTION DEFICIT/HYPERACTIVITY DISORDER
     Dosage: UNK
     Dates: start: 20110115, end: 20110701
  12. HYDROCODONE/ACETAMINOPHEN [Concomitant]
     Indication: PAIN
     Dosage: 5-325, 1 to 2 tablets Q 4 -6hrs not to exceed 8 tablets
     Route: 048
     Dates: start: 20110119, end: 20110322
  13. HYDROCODONE/ACETAMINOPHEN [Concomitant]
     Indication: PAIN
     Dosage: 5-500, 1 tablet every 4-6 hrs as needed
     Dates: start: 20110508
  14. HYDROCODONE/ACETAMINOPHEN [Concomitant]
     Indication: PAIN
     Dosage: 10325 UNK, UNK
     Route: 048
     Dates: start: 20110704, end: 20120427
  15. ACETAMINOPHEN W/CODEINE [Concomitant]
     Indication: MIGRAINE
     Dosage: 1 tablet every 8 hrs PRN
     Dates: start: 20110616
  16. OMEPRAZOLE [Concomitant]
     Dosage: 40 mg, BID
     Route: 048
  17. IBUPROFEN [Concomitant]

REACTIONS (12)
  - Pulmonary embolism [None]
  - Thrombosis [None]
  - Injury [None]
  - Chest pain [None]
  - Dyspnoea [None]
  - Pulmonary hypertension [None]
  - Asthenia [None]
  - Cerebrovascular accident [None]
  - Pleuritic pain [None]
  - Syncope [None]
  - Cardiomegaly [None]
  - Dyspnoea [None]
